FAERS Safety Report 8578925-5 (Version None)
Quarter: 2012Q2

REPORT INFORMATION
  Report Type: 
  Country: None (occurrence: None)
  Receive Date: 20120423
  Receipt Date: 20100709
  Transmission Date: 20120825
  Serious: Yes (Hospitalization)
  Sender: FDA-Public Use
  Company Number: PHHY2010US31094

PATIENT
  Age: 26 Year
  Sex: Male
  Weight: 60.8 kg

DRUGS (4)
  1. HYDREA [Concomitant]
  2. EXJADE [Suspect]
     Indication: SICKLE CELL ANAEMIA
     Dosage: 1250 MG/DAY, ORAL
     Route: 048
     Dates: start: 20080205
  3. HYDROCODONE BITARTRATE [Concomitant]
  4. FOLIC ACID [Concomitant]

REACTIONS (1)
  - SICKLE CELL ANAEMIA WITH CRISIS [None]
